FAERS Safety Report 5426510-6 (Version None)
Quarter: 2007Q3

REPORT INFORMATION
  Report Type: 
  Country: None (occurrence: None)
  Receive Date: 20070731
  Receipt Date: 20070621
  Transmission Date: 20080115
  Serious: No
  Sender: FDA-Public Use
  Company Number: US200706005187

PATIENT
  Age: 58 Year
  Sex: Male
  Weight: 124.7 kg

DRUGS (8)
  1. BYETTA [Suspect]
     Indication: TYPE 2 DIABETES MELLITUS
     Dosage: 5 UG, 2/D, SUBCUTANEOUS
     Route: 058
     Dates: start: 20070601
  2. METFORMIN HCL [Concomitant]
  3. AMARYL [Concomitant]
  4. PLAVIX [Concomitant]
  5. ASPIRIN [Concomitant]
  6. COQ10 [Concomitant]
  7. VYTORIN [Concomitant]
  8. LISINOPRIL [Concomitant]

REACTIONS (8)
  - BLOOD GLUCOSE INCREASED [None]
  - BLOOD PRESSURE DIASTOLIC INCREASED [None]
  - CONSTIPATION [None]
  - DISTURBANCE IN SEXUAL AROUSAL [None]
  - ERUCTATION [None]
  - HEART RATE INCREASED [None]
  - MUSCLE SPASMS [None]
  - WEIGHT DECREASED [None]
